FAERS Safety Report 16381353 (Version 2)
Quarter: 2019Q2

REPORT INFORMATION
  Report Type: Spontaneous
  Country: GB (occurrence: GB)
  Receive Date: 20190603
  Receipt Date: 20190619
  Transmission Date: 20190711
  Serious: Yes (Other)
  Sender: FDA-Public Use
  Company Number: GB-CONCORDIA PHARMACEUTICALS INC.-E2B_00019926

PATIENT
  Age: 49 Year
  Sex: Male

DRUGS (5)
  1. OCTREOTIDE. [Concomitant]
     Active Substance: OCTREOTIDE
     Dates: start: 2003, end: 2004
  2. AZATHIOPRINE. [Concomitant]
     Active Substance: AZATHIOPRINE
     Indication: PEMPHIGUS
     Dates: end: 201510
  3. PREDNISOLONE. [Suspect]
     Active Substance: PREDNISOLONE
     Indication: PEMPHIGUS
     Dosage: LONG TERM AT DOSES NO LOWER THAN 10 MG FOR OVER 15 YEARS
  4. PREDNISOLONE. [Suspect]
     Active Substance: PREDNISOLONE
     Dosage: AT LEAST ANOTHER 10 YEARS
  5. CABERGOLINE. [Concomitant]
     Active Substance: CABERGOLINE
     Dates: end: 2004

REACTIONS (2)
  - Osteoporosis [Unknown]
  - Osteopenia [Unknown]

NARRATIVE: CASE EVENT DATE: 2004
